FAERS Safety Report 24921997 (Version 1)
Quarter: 2025Q1

REPORT INFORMATION
  Report Type: Spontaneous
  Country: BE (occurrence: BE)
  Receive Date: 20250204
  Receipt Date: 20250204
  Transmission Date: 20250408
  Serious: Yes (Other)
  Sender: RANBAXY
  Company Number: BE-SUN PHARMACEUTICAL INDUSTRIES LTD-2025R1-491856

PATIENT
  Age: 80 Year
  Sex: Male

DRUGS (1)
  1. TRAMADOL [Suspect]
     Active Substance: TRAMADOL
     Indication: Back pain
     Route: 065

REACTIONS (1)
  - Oesophagitis [Unknown]
